FAERS Safety Report 6815059-1 (Version None)
Quarter: 2010Q3

REPORT INFORMATION
  Report Type: 
  Country: None (occurrence: None)
  Receive Date: 20100702
  Receipt Date: 20100625
  Transmission Date: 20110219
  Serious: Yes (Other)
  Sender: FDA-Public Use
  Company Number: SE-NOVOPROD-307768

PATIENT
  Age: 67 Year
  Sex: Female

DRUGS (1)
  1. VAGIFEM [Suspect]
     Indication: SENILE GENITAL ATROPHY
     Dosage: 2 TO 3 TAB, QW
     Route: 067
     Dates: start: 20070101

REACTIONS (1)
  - VULVOVAGINITIS [None]
